FAERS Safety Report 21266535 (Version 1)
Quarter: 2022Q3

REPORT INFORMATION
  Report Type: Spontaneous
  Country: US (occurrence: US)
  Receive Date: 20220829
  Receipt Date: 20220829
  Transmission Date: 20221027
  Serious: Yes (Hospitalization, Other)
  Sender: FDA-Public Use
  Company Number: US-INDIVIOR EUROPE LIMITED-INDV-135603-2022

PATIENT
  Age: 31 Year
  Sex: Female
  Weight: 45.5 kg

DRUGS (4)
  1. BUPRENORPHINE [Suspect]
     Active Substance: BUPRENORPHINE
     Indication: Drug dependence
     Dosage: UNK
     Route: 065
  2. BUPRENORPHINE\NALOXONE [Suspect]
     Active Substance: BUPRENORPHINE\NALOXONE
     Indication: Drug dependence
     Dosage: 2 MILLIGRAM, UNKNOWN
     Route: 065
  3. BUPRENORPHINE\NALOXONE [Suspect]
     Active Substance: BUPRENORPHINE\NALOXONE
     Dosage: 4 MILLIGRAM, 3 TIMES DAILY
     Route: 065
  4. METHAMPHETAMINE [Suspect]
     Active Substance: METHAMPHETAMINE
     Indication: Product used for unknown indication
     Dosage: UNK
     Route: 042

REACTIONS (8)
  - Pneumonia staphylococcal [Unknown]
  - Cerebrovascular accident [Unknown]
  - Septic embolus [Unknown]
  - Endocarditis staphylococcal [Unknown]
  - Staphylococcal bacteraemia [Unknown]
  - Drug abuse [Unknown]
  - Mental status changes [Unknown]
  - Inappropriate schedule of product administration [Unknown]
